FAERS Safety Report 4539700-1 (Version None)
Quarter: 2004Q4

REPORT INFORMATION
  Report Type: 
  Country: None (occurrence: None)
  Receive Date: 20041228
  Receipt Date: 20041214
  Transmission Date: 20050328
  Serious: Yes (Disabling)
  Sender: FDA-Public Use
  Company Number: US-JNJFOC-20040505463

PATIENT
  Sex: Female
  Weight: 60.33 kg

DRUGS (3)
  1. TOPAMAX [Suspect]
     Dosage: 100 MG AT HS
     Dates: start: 20030801
  2. CELEXA [Concomitant]
     Dates: start: 20040317
  3. QUININE SULFATE [Concomitant]

REACTIONS (25)
  - ACQUIRED PYLORIC STENOSIS [None]
  - ANXIETY [None]
  - ASTHENIA [None]
  - BACK PAIN [None]
  - BLOOD AMYLASE INCREASED [None]
  - CARPAL TUNNEL SYNDROME [None]
  - COUGH [None]
  - DECREASED APPETITE [None]
  - DEPRESSION [None]
  - DIARRHOEA [None]
  - DIZZINESS [None]
  - DYSGEUSIA [None]
  - DYSPNOEA [None]
  - FATIGUE [None]
  - FOOD AVERSION [None]
  - GASTRITIS [None]
  - HEADACHE [None]
  - INSOMNIA [None]
  - JOINT SWELLING [None]
  - NEUTROPHIL COUNT ABNORMAL [None]
  - RASH [None]
  - SINUS DISORDER [None]
  - TREMOR [None]
  - WEIGHT DECREASED [None]
  - WHITE BLOOD CELL COUNT INCREASED [None]
